FAERS Safety Report 26135901 (Version 1)
Quarter: 2025Q4

REPORT INFORMATION
  Report Type: Spontaneous
  Country: JP (occurrence: JP)
  Receive Date: 20251209
  Receipt Date: 20251209
  Transmission Date: 20260117
  Serious: Yes (Other)
  Sender: PFIZER
  Company Number: JP-PFIZER INC-PV202500141873

PATIENT
  Age: 39 Year
  Sex: Female

DRUGS (1)
  1. AMPICILLIN SODIUM\SULBACTAM SODIUM [Suspect]
     Active Substance: AMPICILLIN SODIUM\SULBACTAM SODIUM
     Indication: Infection
     Dosage: UNK

REACTIONS (3)
  - Stevens-Johnson syndrome [Recovering/Resolving]
  - Erythema [Recovering/Resolving]
  - Enanthema [Recovering/Resolving]
